FAERS Safety Report 23018144 (Version 3)
Quarter: 2024Q3

REPORT INFORMATION
  Report Type: Spontaneous
  Country: JP (occurrence: JP)
  Receive Date: 20231003
  Receipt Date: 20240821
  Transmission Date: 20241017
  Serious: Yes (Disabling, Other)
  Sender: MERCK
  Company Number: JP-MSD-M2022-51573

PATIENT
  Age: 48 Year
  Sex: Female

DRUGS (6)
  1. KEYTRUDA [Suspect]
     Active Substance: PEMBROLIZUMAB
     Indication: Triple negative breast cancer
     Dosage: 200 MILLIGRAM, Q3W
     Route: 041
     Dates: start: 20221104, end: 20221104
  2. KEYTRUDA [Suspect]
     Active Substance: PEMBROLIZUMAB
     Dosage: 200 MILLIGRAM, Q3W
     Route: 041
     Dates: end: 2023
  3. EPIRUBICIN HYDROCHLORIDE [Suspect]
     Active Substance: EPIRUBICIN HYDROCHLORIDE
     Indication: Triple negative breast cancer
     Dosage: UNK
     Route: 041
     Dates: start: 202212, end: 202212
  4. CYCLOPHOSPHAMIDE [Suspect]
     Active Substance: CYCLOPHOSPHAMIDE
     Indication: Triple negative breast cancer
     Dosage: UNK
     Route: 041
     Dates: start: 202212, end: 202212
  5. CARBOPLATIN [Concomitant]
     Active Substance: CARBOPLATIN
     Indication: Triple negative breast cancer
     Dosage: UNK
     Route: 041
     Dates: start: 202211, end: 202212
  6. PACLITAXEL [Concomitant]
     Active Substance: PACLITAXEL
     Indication: Triple negative breast cancer
     Dosage: UNK
     Route: 041
     Dates: start: 202211, end: 202212

REACTIONS (4)
  - Cholangitis [Recovered/Resolved]
  - Immune-mediated arthritis [Recovered/Resolved]
  - Immune-mediated hepatic disorder [Recovered/Resolved]
  - Malaise [Recovered/Resolved]

NARRATIVE: CASE EVENT DATE: 20221118
